FAERS Safety Report 4480626-X (Version None)
Quarter: 2004Q4

REPORT INFORMATION
  Report Type: 
  Country: None (occurrence: None)
  Receive Date: 20041019
  Receipt Date: 20041008
  Transmission Date: 20050328
  Serious: Yes (Hospitalization, Other)
  Sender: FDA-Public Use
  Company Number: 2004076634

PATIENT
  Age: 39 Year
  Sex: Male

DRUGS (5)
  1. VIRACEPT [Suspect]
     Indication: HIV INFECTION
     Dosage: (2 IN 1 D), ORAL
     Route: 048
     Dates: end: 20040914
  2. EMTRICITABINE (EMTRICITABINE) [Suspect]
     Indication: HIV INFECTION
     Dosage: ORAL
     Route: 048
  3. TENOFOVIR DISOPROXIL FUMARATE (TENOFOVIR DISOPROXIL FUMARATE) [Suspect]
     Indication: HIV INFECTION
     Dosage: ORAL
     Route: 048
  4. PYRIMETHAMINE TAB [Suspect]
     Indication: ILL-DEFINED DISORDER
  5. CLINDAMYCIN (CLINDAMYCIN) [Suspect]
     Indication: ILL-DEFINED DISORDER

REACTIONS (6)
  - CEREBRAL TOXOPLASMOSIS [None]
  - PANCYTOPENIA [None]
  - PRURITUS [None]
  - RASH MACULO-PAPULAR [None]
  - TOXIC SKIN ERUPTION [None]
  - URTICARIA [None]
